FAERS Safety Report 5565366-8 (Version None)
Quarter: 2007Q4

REPORT INFORMATION
  Report Type: 
  Country: None (occurrence: None)
  Receive Date: 20071218
  Receipt Date: 20041025
  Transmission Date: 20080405
  Serious: Yes (Death)
  Sender: FDA-Public Use
  Company Number: FR-ROCHE-380490

PATIENT
  Age: 84 Year
  Sex: Male
  Weight: 80 kg

DRUGS (5)
  1. XELODA [Suspect]
     Dosage: CYCLIC REGIMEN.
     Route: 048
     Dates: start: 20040618, end: 20040820
  2. AMLOR [Concomitant]
     Dosage: LONG TERM TREATMENT.
     Dates: end: 20041001
  3. ALLOPURINOL [Concomitant]
     Dosage: LONG TERM TREATMENT.
     Dates: end: 20041001
  4. PLAVIX [Concomitant]
     Dosage: LONG TERM TREATMENT.
     Dates: end: 20041001
  5. SKENAN [Concomitant]
     Dates: start: 20040925, end: 20041001

REACTIONS (3)
  - GASTROINTESTINAL HAEMORRHAGE [None]
  - HEPATOCELLULAR DAMAGE [None]
  - MACROGLOSSIA [None]
